FAERS Safety Report 9247110 (Version 1)
Quarter: 2013Q2

REPORT INFORMATION
  Report Type: Spontaneous
  Country: US (occurrence: US)
  Receive Date: 20130423
  Receipt Date: 20130423
  Transmission Date: 20140414
  Serious: Yes (Hospitalization)
  Sender: FDA-Public Use
  Company Number: US-009507513-1304USA011859

PATIENT
  Age: 50 Year
  Sex: Male

DRUGS (18)
  1. DULERA [Suspect]
     Indication: CHRONIC OBSTRUCTIVE PULMONARY DISEASE
     Dosage: 2 PUFFS,TWICE A DAY
     Dates: start: 20130417
  2. DUONEB [Concomitant]
     Dosage: EVERY 4 HOURS
  3. DUONEB [Concomitant]
     Dosage: EVERY 4 HOURS AS NEEDED
  4. PROTONIX [Concomitant]
     Dosage: UNK
     Dates: start: 20130417
  5. CYCLOBENZAPRINE HYDROCHLORIDE [Concomitant]
     Dosage: UNK
  6. ACETAMINOPHEN [Concomitant]
  7. ALBUTEROL [Concomitant]
  8. MAALOX (ALUMINUM HYDROXIDE (+) MAGNESIUM HYDROXIDE) [Concomitant]
  9. BISACODYL [Concomitant]
  10. CHLORDIAZEPOXIDE [Concomitant]
  11. FERROUS SULFATE [Concomitant]
  12. FOLIC ACID [Concomitant]
  13. LACTOBACILLUS ACIDOPHILUS [Concomitant]
  14. MAGNESIUM (UNSPECIFIED) [Concomitant]
  15. MINERALS (UNSPECIFIED) (+) VITAMINS (UNSPECIFIED) [Concomitant]
  16. FLOMAX (MORNIFLUMATE) [Concomitant]
  17. THIAMINE [Concomitant]
  18. TRAMADOL HYDROCHLORIDE [Concomitant]

REACTIONS (1)
  - Angioedema [Not Recovered/Not Resolved]
